FAERS Safety Report 8457220-9 (Version None)
Quarter: 2012Q2

REPORT INFORMATION
  Report Type: 
  Country: None (occurrence: None)
  Receive Date: 20120621
  Receipt Date: 20120611
  Transmission Date: 20120825
  Serious: Yes (Hospitalization)
  Sender: FDA-Public Use
  Company Number: US-PFIZER INC-2012146024

PATIENT
  Age: 33 Year
  Sex: Female
  Weight: 40.1 kg

DRUGS (6)
  1. CLONAZEPAM [Concomitant]
     Dosage: UNK
  2. METOPROLOL [Concomitant]
     Dosage: UNK
  3. FENTANYL [Concomitant]
     Dosage: UNK
     Route: 062
  4. IBUPROFEN [Suspect]
     Indication: PRODUCT USED FOR UNKNOWN INDICATION
     Dosage: UNK
     Route: 048
  5. CARISOPRODOL [Concomitant]
     Dosage: UNK
  6. APAP TAB [Suspect]
     Indication: PRODUCT USED FOR UNKNOWN INDICATION
     Dosage: UNK
     Route: 048

REACTIONS (3)
  - AGITATION [None]
  - MULTIPLE DRUG OVERDOSE [None]
  - INTENTIONAL SELF-INJURY [None]
